FAERS Safety Report 24184617 (Version 2)
Quarter: 2024Q3

REPORT INFORMATION
  Report Type: Spontaneous
  Country: NZ (occurrence: NZ)
  Receive Date: 20240807
  Receipt Date: 20240816
  Transmission Date: 20241016
  Serious: Yes (Other)
  Sender: GUERBET
  Company Number: NZ-GUERBET / NEW ZEALAND-NZ-20240004

PATIENT
  Age: 28 Year
  Sex: Female
  Weight: 55 kg

DRUGS (1)
  1. DOTAREM [Suspect]
     Active Substance: GADOTERATE MEGLUMINE
     Indication: Magnetic resonance imaging neck
     Route: 042
     Dates: start: 20240729, end: 20240729

REACTIONS (8)
  - Throat tightness [Recovered/Resolved]
  - Periorbital swelling [Recovered/Resolved]
  - Sneezing [Recovered/Resolved]
  - Rash [Recovered/Resolved]
  - Throat irritation [Recovered/Resolved]
  - Anxiety [Recovered/Resolved]
  - Somnolence [Recovered/Resolved]
  - Flushing [Recovered/Resolved]

NARRATIVE: CASE EVENT DATE: 20240729
